FAERS Safety Report 9416856 (Version 1)
Quarter: 2013Q3

REPORT INFORMATION
  Report Type: Spontaneous
  Country: US (occurrence: US)
  Receive Date: 20130724
  Receipt Date: 20130724
  Transmission Date: 20140515
  Serious: Yes (Hospitalization)
  Sender: FDA-Public Use
  Company Number: US-B.I. PHARMACEUTICALS,INC./RIDGEFIELD-2013-BI-21333BP

PATIENT
  Sex: Male

DRUGS (7)
  1. SPIRIVA [Suspect]
     Indication: CHRONIC OBSTRUCTIVE PULMONARY DISEASE
     Dosage: 18 MCG
     Route: 055
     Dates: start: 2008
  2. ATENOLOL [Concomitant]
     Indication: BLOOD PRESSURE
     Dosage: 5 MG
     Route: 048
     Dates: start: 2009
  3. CRESTOR [Concomitant]
     Indication: PROPHYLAXIS
     Dosage: 5 MG
     Route: 048
     Dates: start: 2009
  4. PLAVIX [Concomitant]
     Indication: ANTICOAGULANT THERAPY
     Dosage: 75 MG
     Route: 048
     Dates: start: 2009
  5. ASPIRIN [Concomitant]
     Indication: ANTICOAGULANT THERAPY
     Dosage: 325 MG
     Route: 048
     Dates: start: 2009
  6. DILTIAZEM ER [Concomitant]
     Indication: HEART RATE ABNORMAL
     Dosage: 120 MG
     Route: 048
     Dates: start: 2009
  7. LISIOPRIL [Concomitant]
     Indication: BLOOD PRESSURE
     Dosage: 2.5 MG
     Route: 048
     Dates: start: 2013

REACTIONS (1)
  - Coronary artery occlusion [Recovered/Resolved]
